FAERS Safety Report 10614276 (Version 2)
Quarter: 2014Q4

REPORT INFORMATION
  Report Type: Spontaneous
  Country: FR (occurrence: FR)
  Receive Date: 20141128
  Receipt Date: 20141128
  Transmission Date: 20150529
  Serious: Yes (Other)
  Sender: FDA-Public Use
  Company Number: FR-ASTRAZENECA-2014SE67970

PATIENT
  Age: 832 Month
  Sex: Male

DRUGS (4)
  1. ZOLADEX [Suspect]
     Active Substance: GOSERELIN ACETATE
     Indication: PROSTATE CANCER
     Route: 058
     Dates: start: 20140404, end: 20140704
  2. CRESTOR [Concomitant]
     Active Substance: ROSUVASTATIN CALCIUM
     Route: 048
     Dates: start: 2012
  3. BISOCE GE [Concomitant]
     Dosage: 2.5 MG EVERY MORNING AND EVERY EVENING
     Route: 048
     Dates: start: 2012
  4. EFFIENT [Concomitant]
     Active Substance: PRASUGREL HYDROCHLORIDE
     Route: 048
     Dates: start: 2012

REACTIONS (11)
  - Malnutrition [Unknown]
  - General physical health deterioration [Unknown]
  - Productive cough [Recovering/Resolving]
  - Rhinorrhoea [Not Recovered/Not Resolved]
  - Hunger [Unknown]
  - Feeling hot [Not Recovered/Not Resolved]
  - Weight decreased [Not Recovered/Not Resolved]
  - Intestinal transit time increased [Recovering/Resolving]
  - Insomnia [Recovered/Resolved]
  - Dysphagia [Recovering/Resolving]
  - Hypophagia [Unknown]

NARRATIVE: CASE EVENT DATE: 201407
